FAERS Safety Report 6300552-0 (Version None)
Quarter: 2009Q3

REPORT INFORMATION
  Report Type: 
  Country: None (occurrence: None)
  Receive Date: 20090806
  Receipt Date: 20090413
  Transmission Date: 20100115
  Serious: Yes (Hospitalization)
  Sender: FDA-Public Use
  Company Number: US-ABBOTT-09P-163-0568175-00

PATIENT
  Sex: Female
  Weight: 65.83 kg

DRUGS (2)
  1. DEPAKOTE ER [Suspect]
     Indication: BIPOLAR I DISORDER
     Route: 048
     Dates: start: 20090212, end: 20090401
  2. LORAZEPAM [Concomitant]
     Indication: ANXIETY

REACTIONS (2)
  - HEPATIC ENZYME INCREASED [None]
  - MANIA [None]
